FAERS Safety Report 8579476-4 (Version None)
Quarter: 2012Q3

REPORT INFORMATION
  Report Type: 
  Country: None (occurrence: None)
  Receive Date: 20120808
  Receipt Date: 20120509
  Transmission Date: 20120928
  Serious: Yes (Hospitalization)
  Sender: FDA-Public Use
  Company Number: US-GLAXOSMITHKLINE-A0976981A

PATIENT
  Age: 82 Year
  Sex: Female

DRUGS (6)
  1. ALBUTEROL SULFATE [Concomitant]
  2. FLUTICASONE PROPIONATE [Suspect]
     Indication: ASTHMA
     Dosage: 1PUFF TWICE PER DAY
     Route: 055
  3. WARFARIN SODIUM [Concomitant]
  4. FLECAINIDE ACETATE [Concomitant]
  5. FLOVENT [Suspect]
     Indication: ASTHMA
     Route: 055
  6. VITAMIN D [Concomitant]

REACTIONS (3)
  - FRACTURE [None]
  - THERAPEUTIC RESPONSE DECREASED [None]
  - OSTEOPOROSIS [None]
